FAERS Safety Report 7879996-1 (Version None)
Quarter: 2011Q4

REPORT INFORMATION
  Report Type: 
  Country: None (occurrence: None)
  Receive Date: 20111101
  Receipt Date: 20111026
  Transmission Date: 20120403
  Serious: Yes (Death)
  Sender: FDA-Public Use
  Company Number: US-B.I. PHARMACEUTICALS,INC./RIDGEFIELD-2011-BP-25046BP

PATIENT
  Sex: Male

DRUGS (14)
  1. COREG [Concomitant]
  2. CELEXA [Concomitant]
  3. PRADAXA [Suspect]
     Dates: start: 20111010, end: 20111024
  4. LASIX [Concomitant]
  5. OXYCODONE HCL [Concomitant]
  6. DICLOFENAC POTASSIUM [Concomitant]
  7. PERCOCET [Concomitant]
  8. DIOVAN [Concomitant]
  9. CALCIUM [Concomitant]
  10. POTASSIUM CHLORIDE [Concomitant]
  11. NITROGLYCERIN [Concomitant]
  12. ZETIA [Concomitant]
  13. SIMVASTATIN [Concomitant]
  14. DIAZEPAM [Concomitant]

REACTIONS (1)
  - GASTROINTESTINAL HAEMORRHAGE [None]
